FAERS Safety Report 5389633-6 (Version None)
Quarter: 2007Q3

REPORT INFORMATION
  Report Type: 
  Country: None (occurrence: None)
  Receive Date: 20070713
  Receipt Date: 20070709
  Transmission Date: 20080115
  Serious: Yes (Death)
  Sender: FDA-Public Use
  Company Number: 2007SP012508

PATIENT
  Age: 55 Year
  Sex: Male

DRUGS (4)
  1. TEMODAL [Suspect]
     Indication: GLIOBLASTOMA
     Dosage: 130 MG; QD; PO
     Route: 048
     Dates: start: 20070327, end: 20070503
  2. DECADRON [Concomitant]
  3. TYLENOL (CAPLET) [Concomitant]
  4. ZANTAC 150 [Concomitant]

REACTIONS (3)
  - ACUTE RESPIRATORY DISTRESS SYNDROME [None]
  - PNEUMOMEDIASTINUM [None]
  - PNEUMONIA [None]
